FAERS Safety Report 6052744-6 (Version None)
Quarter: 2009Q1

REPORT INFORMATION
  Report Type: 
  Country: None (occurrence: None)
  Receive Date: 20090127
  Receipt Date: 20090121
  Transmission Date: 20090719
  Serious: Yes (Death, Hospitalization, Other)
  Sender: FDA-Public Use
  Company Number: JP-BRISTOL-MYERS SQUIBB COMPANY-14478556

PATIENT
  Age: 59 Year
  Sex: Male

DRUGS (2)
  1. BRIPLATIN [Suspect]
     Indication: GASTRIC CANCER
     Route: 041
  2. IRINOTECAN HCL [Suspect]
     Indication: GASTRIC CANCER
     Route: 041

REACTIONS (5)
  - GLOMERULONEPHROPATHY [None]
  - INTESTINAL PERFORATION [None]
  - PULMONARY TUBERCULOSIS [None]
  - SEPSIS [None]
  - TUMOUR LYSIS SYNDROME [None]
